FAERS Safety Report 9265741 (Version 1)
Quarter: 2013Q2

REPORT INFORMATION
  Report Type: Spontaneous
  Country: US (occurrence: US)
  Receive Date: 20130501
  Receipt Date: 20130501
  Transmission Date: 20140414
  Serious: Yes (Hospitalization)
  Sender: FDA-Public Use
  Company Number: US-GLAXOSMITHKLINE-A0725149A

PATIENT
  Age: 51 Year
  Sex: Female
  Weight: 70.9 kg

DRUGS (2)
  1. AVANDIA [Suspect]
     Indication: TYPE 2 DIABETES MELLITUS
     Dosage: 2MG PER DAY
     Route: 065
     Dates: start: 20060421, end: 2007
  2. AVANDAMET [Suspect]
     Indication: TYPE 2 DIABETES MELLITUS
     Dosage: 2MG PER DAY
     Route: 065
     Dates: start: 20040722, end: 2006

REACTIONS (3)
  - Myocardial infarction [Not Recovered/Not Resolved]
  - Heart injury [Unknown]
  - Coronary artery disease [Unknown]
